FAERS Safety Report 8907871 (Version 1)
Quarter: 2012Q4

REPORT INFORMATION
  Report Type: 
  Country: US (occurrence: US)
  Receive Date: 20121114
  Receipt Date: 20121114
  Transmission Date: 20130627
  Serious: Yes (Hospitalization)
  Sender: FDA-Public Use
  Company Number: US-BAYER-2012-116529

PATIENT
  Age: 54 Year
  Sex: Female

DRUGS (22)
  1. YAZ [Suspect]
  2. OCELLA [Suspect]
     Dosage: UNK
  3. ADVAIR DISKUS [Concomitant]
     Dosage: UNK
     Dates: start: 20100505
  4. ADVAIR DISKUS [Concomitant]
     Dosage: UNK
     Dates: start: 20100624
  5. ADVAIR DISKUS [Concomitant]
     Dosage: UNK
     Dates: start: 20100702
  6. ALPRAZOLAM [Concomitant]
     Dosage: UNK
     Dates: start: 20100505
  7. ALPRAZOLAM [Concomitant]
     Dosage: UNK
     Dates: start: 20100624
  8. ALPRAZOLAM [Concomitant]
     Dosage: UNK
     Dates: start: 20100702
  9. EFFEXOR XR [Concomitant]
     Dosage: UNK
     Dates: start: 20100505
  10. EFFEXOR XR [Concomitant]
     Dosage: UNK
     Dates: start: 20100624
  11. EFFEXOR XR [Concomitant]
     Dosage: UNK
     Dates: start: 20100702
  12. HYDROCODONE W/ACETAMINOPHEN [Concomitant]
     Dosage: UNK
     Dates: start: 20100505
  13. HYDROCODONE W/ACETAMINOPHEN [Concomitant]
     Dosage: UNK
     Dates: start: 20100624
  14. HYDROCODONE W/ACETAMINOPHEN [Concomitant]
     Dosage: UNK
     Dates: start: 20100702
  15. IBUPROFEN [Concomitant]
     Dosage: UNK
     Dates: start: 20100505
  16. IBUPROFEN [Concomitant]
     Dosage: UNK
     Dates: start: 20100624
  17. IBUPROFEN [Concomitant]
     Dosage: UNK
     Dates: start: 20100702
  18. PREDNISOLONE ACETATE [Concomitant]
     Dosage: UNK
     Dates: start: 20100505
  19. PREDNISOLONE ACETATE [Concomitant]
     Dosage: UNK
     Dates: start: 20100624
  20. PREDNISOLONE ACETATE [Concomitant]
     Dosage: UNK
     Dates: start: 20100702
  21. METRONIDAZOLE [Concomitant]
     Dosage: UNK
     Dates: start: 20100702
  22. CLARITIN [Concomitant]

REACTIONS (1)
  - Pulmonary embolism [None]
